FAERS Safety Report 19032206 (Version 1)
Quarter: 2021Q1

REPORT INFORMATION
  Report Type: Spontaneous
  Country: None (occurrence: JP)
  Receive Date: 20210319
  Receipt Date: 20210319
  Transmission Date: 20210420
  Serious: Yes (Other)
  Sender: FDA-Public Use
  Company Number: JP-ACACIA PHARMA LIMITED-2108217

PATIENT
  Age: 61 Year
  Sex: Male
  Weight: 68.77 kg

DRUGS (14)
  1. FENTANYL. [Concomitant]
     Active Substance: FENTANYL
     Route: 042
     Dates: start: 20201108
  2. SONIAS [Concomitant]
     Active Substance: GLIMEPIRIDE\PIOGLITAZONE HYDROCHLORIDE
  3. ROSUVASTATIN. [Concomitant]
     Active Substance: ROSUVASTATIN
  4. LAMOTRIGINE. [Concomitant]
     Active Substance: LAMOTRIGINE
  5. SUPRANE [Suspect]
     Active Substance: DESFLURANE
     Dates: start: 20201118, end: 20201118
  6. RISPERIDONE. [Concomitant]
     Active Substance: RISPERIDONE
     Route: 048
  7. BYFAVO [Suspect]
     Active Substance: REMIMAZOLAM BESYLATE
     Indication: GENERAL ANAESTHESIA
     Route: 042
     Dates: start: 20201118, end: 20201118
  8. ULTIVA [Concomitant]
     Active Substance: REMIFENTANIL HYDROCHLORIDE
     Dates: start: 20201118, end: 20201118
  9. SULPIRIDE [Concomitant]
     Active Substance: SULPIRIDE
  10. CYMBALTA [Concomitant]
     Active Substance: DULOXETINE HYDROCHLORIDE
     Route: 048
  11. DUTASTERIDE. [Concomitant]
     Active Substance: DUTASTERIDE
     Route: 048
  12. CANALIA COMBINATION [Concomitant]
     Active Substance: CANAGLIFLOZIN\TENELIGLIPTIN
  13. FLUNITRAZEPAM [Concomitant]
     Active Substance: FLUNITRAZEPAM
     Route: 048
  14. TAMSULOSIN HYDROCHLORIDE. [Concomitant]
     Active Substance: TAMSULOSIN HYDROCHLORIDE

REACTIONS (2)
  - Therapeutic response decreased [Recovered/Resolved]
  - Atrial fibrillation [Recovered/Resolved]

NARRATIVE: CASE EVENT DATE: 20201118
